FAERS Safety Report 14454422 (Version 2)
Quarter: 2018Q2

REPORT INFORMATION
  Report Type: Report from Study
  Country: US (occurrence: US)
  Receive Date: 20180129
  Receipt Date: 20180417
  Transmission Date: 20180711
  Serious: Yes (Hospitalization)
  Sender: FDA-Public Use
  Company Number: US-VIFOR (INTERNATIONAL) INC.-VIT-2018-00889

PATIENT
  Age: 72 Year
  Sex: Male

DRUGS (31)
  1. VELTASSA [Suspect]
     Active Substance: PATIROMER
     Indication: HYPERKALAEMIA
     Route: 048
     Dates: start: 20170811
  2. INSULIN LISPRO [Concomitant]
     Active Substance: INSULIN LISPRO
     Route: 058
  3. TRAZODONE [Concomitant]
     Active Substance: TRAZODONE HYDROCHLORIDE
     Route: 048
  4. GLUCOSE [Concomitant]
     Active Substance: DEXTROSE
  5. SIMVASTATIN. [Concomitant]
     Active Substance: SIMVASTATIN
  6. TAMSULOSIN [Concomitant]
     Active Substance: TAMSULOSIN
     Route: 048
  7. DOCUSATE SODIUM. [Concomitant]
     Active Substance: DOCUSATE SODIUM
     Route: 048
  8. PARACETAMOL~~HYDROCODONE BITARTRATE [Concomitant]
     Route: 048
  9. MORPHINE [Concomitant]
     Active Substance: MORPHINE
     Route: 040
  10. GLYCERYL TRINITRATE [Concomitant]
     Active Substance: NITROGLYCERIN
     Route: 060
  11. PARACETAMOL [Concomitant]
     Active Substance: ACETAMINOPHEN
     Route: 048
  12. GLUCOSE [Concomitant]
     Active Substance: DEXTROSE
     Dosage: 50 PERCENT 50 ML PREFILLED SYRINGE 12.5 G 25 ML
     Route: 040
  13. LANTUS [Concomitant]
     Active Substance: INSULIN GLARGINE
     Route: 058
  14. INSULIN LISPRO [Concomitant]
     Active Substance: INSULIN LISPRO
     Route: 058
  15. DARBEPOETIN ALFA [Concomitant]
     Active Substance: DARBEPOETIN ALFA
     Route: 058
  16. MEROPENEM. [Concomitant]
     Active Substance: MEROPENEM
     Route: 042
  17. PANTOPRAZOLE [Concomitant]
     Active Substance: PANTOPRAZOLE
  18. RISPERIDONE. [Concomitant]
     Active Substance: RISPERIDONE
     Route: 048
  19. SODIUM CHLORIDE. [Concomitant]
     Active Substance: SODIUM CHLORIDE
     Route: 042
  20. ATROPINE. [Concomitant]
     Active Substance: ATROPINE
     Route: 040
  21. ONDANSETRON [Concomitant]
     Active Substance: ONDANSETRON
     Route: 040
  22. VELTASSA [Suspect]
     Active Substance: PATIROMER
  23. KAYEXALATE [Concomitant]
     Active Substance: SODIUM POLYSTYRENE SULFONATE
  24. INSULIN LISPRO [Concomitant]
     Active Substance: INSULIN LISPRO
     Route: 058
  25. TRAVOPROST. [Concomitant]
     Active Substance: TRAVOPROST
  26. CLONIDINE. [Concomitant]
     Active Substance: CLONIDINE
  27. HYDRALAZINE [Concomitant]
     Active Substance: HYDRALAZINE HYDROCHLORIDE
     Route: 040
  28. HYDROMORPHONE [Concomitant]
     Active Substance: HYDROMORPHONE
     Route: 040
  29. GLYCERYL TRINITRATE [Concomitant]
     Active Substance: NITROGLYCERIN
     Route: 061
  30. GLUCOSE [Concomitant]
     Active Substance: DEXTROSE
     Dosage: 50 PERCENT 50 ML PREFILLED SYRINGE 12.5 G 25 ML
     Route: 040
  31. GLUCAGON. [Concomitant]
     Active Substance: GLUCAGON
     Route: 030

REACTIONS (7)
  - Hospitalisation [Not Recovered/Not Resolved]
  - Pyrexia [Unknown]
  - Haematuria [Unknown]
  - Hypoglycaemia [Unknown]
  - Oedema peripheral [Unknown]
  - Urinary retention [Unknown]
  - Off label use [Unknown]

NARRATIVE: CASE EVENT DATE: 2017
